FAERS Safety Report 9509748 (Version 2)
Quarter: 2013Q3

REPORT INFORMATION
  Report Type: Spontaneous
  Country: BR (occurrence: BR)
  Receive Date: 20130909
  Receipt Date: 20130913
  Transmission Date: 20140515
  Serious: Yes (Death, Hospitalization)
  Sender: FDA-Public Use
  Company Number: BR-B.I. PHARMACEUTICALS,INC./RIDGEFIELD-2013-BR-01011BR

PATIENT
  Age: 87 Year
  Sex: Female

DRUGS (5)
  1. TRAYENTA [Suspect]
     Indication: TYPE 2 DIABETES MELLITUS
     Dosage: 5 MG
     Route: 048
     Dates: start: 2012, end: 20130816
  2. SELOZOK [Concomitant]
     Indication: HYPERTENSION
  3. MONOCORDIL [Concomitant]
     Indication: CARDIAC FAILURE
  4. DAFLON [Concomitant]
  5. OMEPRAZOLE [Concomitant]

REACTIONS (3)
  - Cardiac failure [Fatal]
  - Renal failure [Fatal]
  - Cardiogenic shock [Fatal]
